FAERS Safety Report 6757852-X (Version None)
Quarter: 2010Q2

REPORT INFORMATION
  Report Type: 
  Country: None (occurrence: None)
  Receive Date: 20100607
  Receipt Date: 20100602
  Transmission Date: 20101027
  Serious: Yes (Death)
  Sender: FDA-Public Use
  Company Number: CA-ASTRAZENECA-2010SE25544

PATIENT
  Age: 59 Year
  Sex: Male
  Weight: 56 kg

DRUGS (1)
  1. ZOLADEX [Suspect]
     Route: 058

REACTIONS (5)
  - AQUEDUCTAL STENOSIS [None]
  - CEREBRAL HAEMORRHAGE [None]
  - DEPRESSED LEVEL OF CONSCIOUSNESS [None]
  - HYDROCEPHALUS [None]
  - LOSS OF CONSCIOUSNESS [None]
